FAERS Safety Report 4536039-5 (Version None)
Quarter: 2004Q4

REPORT INFORMATION
  Report Type: 
  Country: None (occurrence: None)
  Receive Date: 20041214
  Receipt Date: 20041202
  Transmission Date: 20050328
  Serious: Yes (Hospitalization)
  Sender: FDA-Public Use
  Company Number: 2004UW24793

PATIENT
  Age: 56 Year
  Sex: Male

DRUGS (16)
  1. CRESTOR [Suspect]
     Dosage: 10 MG QD PO
     Route: 048
  2. LANTUS [Concomitant]
  3. NOVOLIN R [Concomitant]
  4. MAVIK [Concomitant]
  5. FUROSEMIDE [Concomitant]
  6. ASPIRIN [Concomitant]
  7. METOPROLOL [Concomitant]
  8. ZAROXOLYN [Concomitant]
  9. COLCHICINE [Concomitant]
  10. PENTOXIFYLLINE [Concomitant]
  11. ALLOPURINOL [Concomitant]
  12. CLONIDINE HCL [Concomitant]
  13. MAGNESIUM OXIDE [Concomitant]
  14. DIGOXIN [Concomitant]
  15. HYDROCODONE [Concomitant]
  16. GLYCILAX [Concomitant]

REACTIONS (3)
  - BLOOD CREATINE PHOSPHOKINASE INCREASED [None]
  - MYOSITIS [None]
  - PROTEINURIA [None]
